FAERS Safety Report 6505000-3 (Version None)
Quarter: 2009Q4

REPORT INFORMATION
  Report Type: 
  Country: None (occurrence: None)
  Receive Date: 20091201
  Receipt Date: 20080108
  Transmission Date: 20100525
  Serious: Yes (Hospitalization)
  Sender: FDA-Public Use
  Company Number: 2009-189352-NL

PATIENT
  Age: 35 Year
  Sex: Female
  Weight: 77.1 kg

DRUGS (2)
  1. NUVARING [Suspect]
     Dates: start: 20070101
  2. FLUOXETINE [Concomitant]

REACTIONS (2)
  - COAGULOPATHY [None]
  - PORTAL VEIN THROMBOSIS [None]
